FAERS Safety Report 9477211 (Version 1)
Quarter: 2013Q3

REPORT INFORMATION
  Report Type: Report from Study
  Country: US (occurrence: US)
  Receive Date: 20130826
  Receipt Date: 20130826
  Transmission Date: 20140515
  Serious: Yes (Hospitalization, Other)
  Sender: FDA-Public Use
  Company Number: US-ABBOTT-13P-163-1134356-00

PATIENT
  Age: 65 Year
  Sex: Male
  Weight: 86.71 kg

DRUGS (6)
  1. SIMCOR 1000/20 [Suspect]
     Indication: BLOOD CHOLESTEROL ABNORMAL
     Dosage: 100/20 AT DINNER TIME
  2. EFFEXOR [Concomitant]
     Indication: PRODUCT USED FOR UNKNOWN INDICATION
  3. METOPROLOL [Concomitant]
     Indication: PRODUCT USED FOR UNKNOWN INDICATION
     Dosage: TITRATING FROM 100MG TO 25 MG
  4. VIT D [Concomitant]
     Indication: PRODUCT USED FOR UNKNOWN INDICATION
     Dosage: 2 PER DAY
  5. ASA [Concomitant]
     Indication: PRODUCT USED FOR UNKNOWN INDICATION
  6. BETA BLOCKERS [Concomitant]
     Indication: PRODUCT USED FOR UNKNOWN INDICATION

REACTIONS (7)
  - Nephrolithiasis [Recovered/Resolved]
  - Tachycardia [Recovered/Resolved]
  - Vascular pseudoaneurysm [Recovered/Resolved]
  - Local swelling [Recovered/Resolved]
  - Urticaria [Not Recovered/Not Resolved]
  - Feeling hot [Not Recovered/Not Resolved]
  - Flushing [Recovering/Resolving]
